FAERS Safety Report 22148580 (Version 1)
Quarter: 2023Q1

REPORT INFORMATION
  Report Type: Spontaneous
  Country: US (occurrence: US)
  Receive Date: 20230328
  Receipt Date: 20230328
  Transmission Date: 20230417
  Serious: No
  Sender: FDA-Public Use
  Company Number: US-BAUSCHBL-2023BNL002447

PATIENT
  Age: 72 Year
  Sex: Female
  Weight: 84.444 kg

DRUGS (2)
  1. LUMIFY [Suspect]
     Active Substance: BRIMONIDINE TARTRATE
     Indication: Erythema
     Dosage: STARTED ABOUT THE LAST 4 MONTHS
     Route: 047
     Dates: start: 202211
  2. LUMIFY [Suspect]
     Active Substance: BRIMONIDINE TARTRATE

REACTIONS (5)
  - Instillation site inflammation [Unknown]
  - Condition aggravated [Unknown]
  - Instillation site irritation [Unknown]
  - Ocular hyperaemia [Unknown]
  - Dry eye [Unknown]
